FAERS Safety Report 4264686-7 (Version None)
Quarter: 2004Q1

REPORT INFORMATION
  Report Type: 
  Country: None (occurrence: None)
  Receive Date: 20040102
  Receipt Date: 20030924
  Transmission Date: 20041129
  Serious: Yes (Hospitalization, Other)
  Sender: FDA-Public Use
  Company Number: KII-2003-0006507

PATIENT
  Age: 46 Year
  Sex: Male

DRUGS (2)
  1. OXYCONTIN [Suspect]
  2. ETHANOL (ETHANOL) [Suspect]

REACTIONS (11)
  - ANION GAP ABNORMAL [None]
  - BASE EXCESS NEGATIVE [None]
  - BLOOD BICARBONATE DECREASED [None]
  - COMA [None]
  - DRUG SCREEN POSITIVE [None]
  - HEART RATE INCREASED [None]
  - HYPOTENSION [None]
  - MEDICATION ERROR [None]
  - POLYSUBSTANCE ABUSE [None]
  - RESPIRATORY RATE DECREASED [None]
  - VENTRICULAR EXTRASYSTOLES [None]
